FAERS Safety Report 14650554 (Version 3)
Quarter: 2018Q2

REPORT INFORMATION
  Report Type: Spontaneous
  Country: US (occurrence: US)
  Receive Date: 20180316
  Receipt Date: 20180423
  Transmission Date: 20180711
  Serious: Yes (Other)
  Sender: FDA-Public Use
  Company Number: US-ENDO PHARMACEUTICALS INC-2018-023264

PATIENT
  Age: 56 Year
  Sex: Male
  Weight: 80.73 kg

DRUGS (3)
  1. TESTIM [Suspect]
     Active Substance: TESTOSTERONE
     Dosage: APPLY EXTERNALLY ONE PACKET (50 MG) DAILY
     Route: 062
     Dates: start: 201603, end: 201803
  2. VALACYCLOVIR                       /01269701/ [Concomitant]
     Active Substance: VALACYCLOVIR HYDROCHLORIDE
     Indication: PRODUCT USED FOR UNKNOWN INDICATION
     Dosage: 500 MG, UNKNOWN
     Route: 065
  3. TESTIM [Suspect]
     Active Substance: TESTOSTERONE
     Indication: HYPOGONADISM
     Dosage: UNK UNKNOWN, UNKNOWN
     Route: 062
     Dates: end: 2014

REACTIONS (10)
  - Emotional disorder [Recovering/Resolving]
  - Memory impairment [Recovered/Resolved]
  - Product quality issue [Unknown]
  - Blood testosterone decreased [Unknown]
  - Suicidal ideation [Recovering/Resolving]
  - Pallor [Recovered/Resolved]
  - Chest pain [Recovered/Resolved]
  - Feeling abnormal [Recovering/Resolving]
  - Headache [Recovered/Resolved]
  - Haemoglobin increased [Recovered/Resolved]

NARRATIVE: CASE EVENT DATE: 2014
